FAERS Safety Report 12660002 (Version 5)
Quarter: 2017Q2

REPORT INFORMATION
  Report Type: Spontaneous
  Country: FR (occurrence: FR)
  Receive Date: 20160817
  Receipt Date: 20170403
  Transmission Date: 20170830
  Serious: Yes (Hospitalization)
  Sender: FDA-Public Use
  Company Number: FR-PFIZER INC-2016382563

PATIENT
  Age: 78 Year
  Sex: Male

DRUGS (14)
  1. TRIATEC [Suspect]
     Active Substance: RAMIPRIL
     Indication: HYPERTENSION
     Dosage: 2.5 MG, 2X/DAY
     Route: 048
  2. SPIRIVA [Suspect]
     Active Substance: TIOTROPIUM BROMIDE MONOHYDRATE
     Indication: ASTHMA
     Dosage: 5 MG, DAILY (2.5 MG 2 INHALATION/PUFFS ONCE A DAY)
     Route: 055
  3. PARACETAMOL [Suspect]
     Active Substance: ACETAMINOPHEN
     Indication: PAIN
     Dosage: 1 G, 3 TO 4 TIMES A DAY
     Route: 048
  4. REPAGLINIDE. [Suspect]
     Active Substance: REPAGLINIDE
     Indication: TYPE 2 DIABETES MELLITUS
     Dosage: 0.5 MG, 2X/DAY
     Route: 048
  5. DIGOXINE NATIVELLE [Suspect]
     Active Substance: DIGOXIN
     Indication: ATRIAL FIBRILLATION
     Dosage: 0.25 MG, DAILY
     Route: 048
  6. BISOPROLOL FUMARATE. [Suspect]
     Active Substance: BISOPROLOL FUMARATE
     Indication: HYPERTENSION
     Dosage: 5 MG, DAILY
     Route: 048
  7. AERIUS [Suspect]
     Active Substance: DESLORATADINE
     Dosage: 5 MG, 2X/DAY
     Route: 048
  8. TAHOR [Suspect]
     Active Substance: ATORVASTATIN CALCIUM
     Indication: HYPERCHOLESTEROLAEMIA
     Dosage: 10 MG, DAILY
     Route: 048
     Dates: end: 20160727
  9. PREVISCAN /00789001/ [Suspect]
     Active Substance: FLUINDIONE
     Dosage: 20 MG, ALTERNATE DAY
     Route: 048
  10. FLUTIFORM [Suspect]
     Active Substance: FLUTICASONE PROPIONATE\FORMOTEROL FUMARATE
     Indication: ASTHMA
     Dosage: 2 DF, 2X/DAY
     Route: 055
     Dates: end: 20160727
  11. ALLOPURINOL. [Suspect]
     Active Substance: ALLOPURINOL
     Indication: HYPERURICAEMIA
     Dosage: 100 MG, DAILY
     Route: 048
  12. PREVISCAN /00789001/ [Suspect]
     Active Substance: FLUINDIONE
     Indication: THROMBOSIS PROPHYLAXIS
     Dosage: 15 MG, ALTERNATE DAY
     Route: 048
  13. VENTOLINE [Suspect]
     Active Substance: ALBUTEROL
     Indication: ASTHMATIC CRISIS
     Dosage: 100 MG, AS NEEDED
     Route: 055
  14. GABAPENTIN. [Suspect]
     Active Substance: GABAPENTIN
     Dosage: 300 MG, 3X/DAY
     Route: 048

REACTIONS (3)
  - Lung disorder [Recovered/Resolved]
  - Pleural effusion [Recovered/Resolved]
  - Eosinophilia [Not Recovered/Not Resolved]

NARRATIVE: CASE EVENT DATE: 201606
